FAERS Safety Report 11977513 (Version 1)
Quarter: 2016Q1

REPORT INFORMATION
  Report Type: Spontaneous
  Country: US (occurrence: None)
  Receive Date: 20160128
  Receipt Date: 20160128
  Transmission Date: 20160526
  Serious: Yes (Other)
  Sender: FDA-Public Use
  Company Number: None

PATIENT
  Age: 67 Year
  Weight: 58 kg

DRUGS (2)
  1. C VITAMIN [Concomitant]
  2. ALENDRONATE [Suspect]
     Active Substance: ALENDRONATE SODIUM
     Indication: OSTEOPOROSIS PROPHYLAXIS
     Dosage: EVERY 3 MONTHS INTO A VEIN
     Route: 042
     Dates: start: 20150127, end: 20150127

REACTIONS (2)
  - Chest pain [None]
  - Arthralgia [None]

NARRATIVE: CASE EVENT DATE: 20150127
